FAERS Safety Report 11005278 (Version 1)
Quarter: 2015Q2

REPORT INFORMATION
  Report Type: Spontaneous
  Country: US (occurrence: US)
  Receive Date: 20150409
  Receipt Date: 20150409
  Transmission Date: 20150821
  Serious: Yes (Other)
  Sender: FDA-Public Use
  Company Number: US-ACTAVIS-2015-07175

PATIENT
  Age: 48 Year
  Sex: Female

DRUGS (10)
  1. CITRIC ACID [Concomitant]
     Active Substance: CITRIC ACID MONOHYDRATE
     Indication: PRODUCT USED FOR UNKNOWN INDICATION
     Dosage: UNK
     Route: 065
  2. FAMOTIDINE. [Concomitant]
     Active Substance: FAMOTIDINE
     Indication: PRODUCT USED FOR UNKNOWN INDICATION
     Dosage: UNK
     Route: 065
  3. LOSARTAN [Concomitant]
     Active Substance: LOSARTAN
     Indication: PRODUCT USED FOR UNKNOWN INDICATION
     Dosage: UNK
     Route: 065
  4. ACETAMINOPHEN W/HYDROCODONE [Concomitant]
     Active Substance: ACETAMINOPHEN\HYDROCODONE
     Indication: PRODUCT USED FOR UNKNOWN INDICATION
     Dosage: UNK
     Route: 065
  5. CALCIUM CARBONATE. [Concomitant]
     Active Substance: CALCIUM CARBONATE
     Indication: PRODUCT USED FOR UNKNOWN INDICATION
     Dosage: UNK
     Route: 065
  6. SODIUM CITRATE. [Concomitant]
     Active Substance: SODIUM CITRATE
     Indication: PRODUCT USED FOR UNKNOWN INDICATION
     Dosage: UNK
     Route: 065
  7. BUDESONIDE (WATSON LABORATORIES) [Suspect]
     Active Substance: BUDESONIDE
     Indication: CROHN^S DISEASE
     Dosage: 9 MG, DAILY
     Route: 048
  8. MIRTAZAPINE. [Concomitant]
     Active Substance: MIRTAZAPINE
     Indication: PRODUCT USED FOR UNKNOWN INDICATION
     Dosage: UNK
     Route: 065
  9. VORICONAZOLE (UNKNOWN) [Suspect]
     Active Substance: VORICONAZOLE
     Indication: OESOPHAGEAL CANDIDIASIS
     Dosage: 200 MG, EVERY 12 HOURS
     Route: 048
  10. NYSTATIN. [Concomitant]
     Active Substance: NYSTATIN
     Indication: OESOPHAGEAL CANDIDIASIS
     Dosage: 500000 U/5 ML AS NEEDED
     Route: 048

REACTIONS (2)
  - Cushing^s syndrome [Recovered/Resolved]
  - Drug interaction [Recovered/Resolved]
